FAERS Safety Report 10934841 (Version 1)
Quarter: 2015Q1

REPORT INFORMATION
  Report Type: Report from Study
  Country: NL (occurrence: NL)
  Receive Date: 20150320
  Receipt Date: 20150320
  Transmission Date: 20150721
  Serious: Yes (Other)
  Sender: FDA-Public Use
  Company Number: NL-BIOMARINAP-NL-2015-105820

PATIENT
  Age: 12 Year
  Sex: Male
  Weight: 35.9 kg

DRUGS (1)
  1. NAGLAZYME [Suspect]
     Active Substance: GALSULFASE
     Indication: MUCOPOLYSACCHARIDOSIS VI
     Dosage: 35 MG, QW
     Route: 042
     Dates: start: 20070807

REACTIONS (1)
  - Intervertebral disc space narrowing [Not Recovered/Not Resolved]

NARRATIVE: CASE EVENT DATE: 20140422
